FAERS Safety Report 6291587-5 (Version None)
Quarter: 2009Q3

REPORT INFORMATION
  Report Type: 
  Country: None (occurrence: None)
  Receive Date: 20090730
  Receipt Date: 20090605
  Transmission Date: 20100115
  Serious: Yes (Death)
  Sender: FDA-Public Use
  Company Number: US-PURDUE-USA-2009-0038824

PATIENT
  Sex: Male

DRUGS (4)
  1. OXYCONTIN [Suspect]
     Indication: PAIN
     Dosage: 10 MG, Q8H
     Dates: start: 19980728, end: 20010429
  2. PROZAC                             /00724401/ [Suspect]
  3. PRILOSEC [Suspect]
  4. AMBIEN [Suspect]

REACTIONS (6)
  - CARBON MONOXIDE POISONING [None]
  - COMPLETED SUICIDE [None]
  - DEPRESSION [None]
  - GASTROOESOPHAGEAL REFLUX DISEASE [None]
  - INSOMNIA [None]
  - PARANOIA [None]
